FAERS Safety Report 16940650 (Version 1)
Quarter: 2019Q4

REPORT INFORMATION
  Report Type: Report from Study
  Country: GB (occurrence: GB)
  Receive Date: 20191021
  Receipt Date: 20191021
  Transmission Date: 20200122
  Serious: Yes (Death, Hospitalization)
  Sender: FDA-Public Use
  Company Number: GB-ROCHE-2435133

PATIENT
  Age: 69 Year
  Sex: Male

DRUGS (1)
  1. RITUXIMAB. [Suspect]
     Active Substance: RITUXIMAB
     Indication: RHEUMATOID ARTHRITIS
     Route: 042
     Dates: start: 20100603, end: 20170105

REACTIONS (7)
  - Pleural effusion [Fatal]
  - Fall [Fatal]
  - Humerus fracture [Fatal]
  - Pneumonia [Fatal]
  - Infective exacerbation of chronic obstructive airways disease [Fatal]
  - Pneumonia aspiration [Fatal]
  - Cerebrovascular accident [Fatal]

NARRATIVE: CASE EVENT DATE: 20190107
